FAERS Safety Report 11921893 (Version 2)
Quarter: 2016Q1

REPORT INFORMATION
  Report Type: Spontaneous
  Country: CN (occurrence: CN)
  Receive Date: 20160115
  Receipt Date: 20160209
  Transmission Date: 20160526
  Serious: Yes (Hospitalization)
  Sender: FDA-Public Use
  Company Number: PHHY2016CN003697

PATIENT
  Age: 45 Year
  Sex: Male
  Weight: 75 kg

DRUGS (2)
  1. TEGRETOL [Suspect]
     Active Substance: CARBAMAZEPINE
     Indication: TRIGEMINAL NEURALGIA
  2. TEGRETOL [Suspect]
     Active Substance: CARBAMAZEPINE
     Indication: FACIAL PAIN
     Dosage: 0.6 G, BID
     Route: 048
     Dates: start: 20120314, end: 20150604

REACTIONS (7)
  - Generalised oedema [Recovering/Resolving]
  - Dizziness [Recovering/Resolving]
  - Personality change [Recovering/Resolving]
  - Diplopia [Recovering/Resolving]
  - Pain [Recovering/Resolving]
  - Visual impairment [Recovering/Resolving]
  - Somnolence [Recovering/Resolving]

NARRATIVE: CASE EVENT DATE: 20150604
